FAERS Safety Report 10693090 (Version 2)
Quarter: 2015Q1

REPORT INFORMATION
  Report Type: Spontaneous
  Country: US (occurrence: US)
  Receive Date: 20150106
  Receipt Date: 20150220
  Transmission Date: 20150720
  Serious: Yes (Other)
  Sender: FDA-Public Use
  Company Number: US-PFIZER INC-2014363378

PATIENT
  Age: 90 Year
  Sex: Female

DRUGS (1)
  1. XALATAN [Suspect]
     Active Substance: LATANOPROST
     Dosage: UNK , UNK
     Dates: start: 201411

REACTIONS (4)
  - Pharyngeal disorder [Recovered/Resolved]
  - Foot fracture [Recovered/Resolved]
  - Ligament sprain [Recovered/Resolved]
  - Muscular weakness [Recovered/Resolved]
